FAERS Safety Report 5857655-4 (Version None)
Quarter: 2008Q3

REPORT INFORMATION
  Report Type: 
  Country: None (occurrence: None)
  Receive Date: 20080826
  Receipt Date: 20080822
  Transmission Date: 20090109
  Serious: Yes (Death, Other)
  Sender: FDA-Public Use
  Company Number: DE-CELGENEUS-062-21880-08030108

PATIENT
  Age: 67 Year
  Sex: Female

DRUGS (2)
  1. REVLIMID [Suspect]
     Indication: MULTIPLE MYELOMA
     Route: 048
     Dates: start: 20071001, end: 20080201
  2. DEXAMETHASONE TAB [Concomitant]
     Indication: MULTIPLE MYELOMA
     Route: 065
     Dates: start: 20071001

REACTIONS (7)
  - CARDIOTOXICITY [None]
  - DISEASE PROGRESSION [None]
  - DRUG INEFFECTIVE [None]
  - IMMUNOSUPPRESSION [None]
  - NEOPLASM PROGRESSION [None]
  - OSTEOLYSIS [None]
  - SHOCK [None]
